FAERS Safety Report 4968377-6 (Version None)
Quarter: 2006Q1

REPORT INFORMATION
  Report Type: 
  Country: None (occurrence: None)
  Receive Date: 20060201
  Receipt Date: 20051229
  Transmission Date: 20060701
  Serious: No
  Sender: FDA-Public Use
  Company Number: 2005PV006400

PATIENT
  Age: 77 Year
  Sex: Female
  Weight: 88.4514 kg

DRUGS (7)
  1. BYETTA [Suspect]
     Indication: DIABETES MELLITUS NON-INSULIN-DEPENDENT
     Dosage: 5 MCG, BID SC
     Route: 058
     Dates: start: 20051117, end: 20051228
  2. GLUCOPHAGE [Concomitant]
  3. LANTUS [Concomitant]
  4. PRANDIN [Concomitant]
  5. LIPITOR [Concomitant]
  6. DIOVAN [Concomitant]
  7. ZANTAC [Concomitant]

REACTIONS (5)
  - ANOREXIA [None]
  - BLOOD GLUCOSE INCREASED [None]
  - DYSPEPSIA [None]
  - NAUSEA [None]
  - WEIGHT DECREASED [None]
